FAERS Safety Report 10175693 (Version 2)
Quarter: 2014Q2

REPORT INFORMATION
  Report Type: Spontaneous
  Country: FI (occurrence: FI)
  Receive Date: 20140516
  Receipt Date: 20140520
  Transmission Date: 20141212
  Serious: No
  Sender: FDA-Public Use
  Company Number: FI-JNJFOC-20140502539

PATIENT
  Sex: 0

DRUGS (13)
  1. DUROGESIC [Suspect]
     Indication: PAIN
     Route: 062
  2. DUROGESIC [Suspect]
     Indication: PAIN
     Route: 062
     Dates: start: 20140403
  3. CYMBALTA [Concomitant]
  4. CALCICHEW [Concomitant]
     Dosage: D3F 500 MG/10 MICROGRAM
  5. THYROXIN [Concomitant]
  6. TENOX (AMLODIPINE) [Concomitant]
  7. PANADOL [Concomitant]
  8. ZOLT [Concomitant]
  9. FURESIS [Concomitant]
  10. MAREVAN [Concomitant]
  11. DECUBAL [Concomitant]
  12. SPIRONOLACTONE [Concomitant]
  13. STROMECTOL [Concomitant]

REACTIONS (2)
  - Wrong technique in drug usage process [Unknown]
  - Product quality issue [Unknown]
